FAERS Safety Report 25449122 (Version 1)
Quarter: 2025Q2

REPORT INFORMATION
  Report Type: Spontaneous
  Country: US (occurrence: US)
  Receive Date: 20250618
  Receipt Date: 20250618
  Transmission Date: 20250716
  Serious: No
  Sender: BIOGEN
  Company Number: US-BIOGEN-2025BI01313825

PATIENT
  Sex: Female

DRUGS (1)
  1. ZURZUVAE [Suspect]
     Active Substance: ZURANOLONE
     Indication: Perinatal depression
     Dosage: TOOK 2 CAPSULES BY MOUTH EVERY OTHER DAY, INSTEAD OF DAILY (100 MG EVERY OTHER DAY INSTEAD OF 50 ...
     Route: 050
     Dates: start: 20250527, end: 20250609

REACTIONS (3)
  - Tremor [Unknown]
  - Fatigue [Unknown]
  - Intentional product misuse [Unknown]

NARRATIVE: CASE EVENT DATE: 20250101
